FAERS Safety Report 7900012-7 (Version None)
Quarter: 2011Q4

REPORT INFORMATION
  Report Type: 
  Country: None (occurrence: None)
  Receive Date: 20111107
  Receipt Date: 20111026
  Transmission Date: 20120403
  Serious: Yes (Other)
  Sender: FDA-Public Use
  Company Number: AR-AMGEN-ARGSP2011051398

PATIENT
  Age: 68 Year
  Sex: Female
  Weight: 73 kg

DRUGS (4)
  1. ATENOLOL [Concomitant]
     Dosage: UNK
     Route: 048
  2. ROSUVASTATIN [Concomitant]
     Dosage: UNK
     Route: 048
  3. ENBREL [Suspect]
     Indication: RHEUMATOID ARTHRITIS
     Dosage: 50 MG, WEEKLY
     Route: 058
     Dates: start: 20060110, end: 20110801
  4. CLONAZEPAM [Concomitant]
     Dosage: UNK
     Route: 048

REACTIONS (2)
  - PNEUMONIA [None]
  - ARTHRALGIA [None]
